FAERS Safety Report 18927453 (Version 1)
Quarter: 2021Q1

REPORT INFORMATION
  Report Type: Spontaneous
  Country: US (occurrence: US)
  Receive Date: 20210223
  Receipt Date: 20210223
  Transmission Date: 20210420
  Serious: No
  Sender: FDA-Public Use
  Company Number: US-FERRINGPH-2020FE04908

PATIENT
  Sex: Female

DRUGS (1)
  1. STIMATE [Suspect]
     Active Substance: DESMOPRESSIN ACETATE
     Indication: HAEMOPHILIA
     Dosage: 1 SPRAY EACH NOSTRIL AS NEEDED
     Route: 045
     Dates: start: 202003

REACTIONS (6)
  - Nausea [Unknown]
  - Out of specification product use [Not Recovered/Not Resolved]
  - Pain in extremity [Unknown]
  - Heart rate increased [Unknown]
  - Recalled product administered [Not Recovered/Not Resolved]
  - Hyperhidrosis [Unknown]
